FAERS Safety Report 9686325 (Version 2)
Quarter: 2013Q4

REPORT INFORMATION
  Report Type: Spontaneous
  Country: US (occurrence: US)
  Receive Date: 20131113
  Receipt Date: 20131113
  Transmission Date: 20140711
  Serious: Yes (Other)
  Sender: FDA-Public Use
  Company Number: US-CUBIST PHARMACEUTICAL, INC.-2013CBST000645

PATIENT
  Sex: 0

DRUGS (21)
  1. CUBICIN [Suspect]
     Indication: POST PROCEDURAL SEPSIS
     Dosage: 6.1 MG, DAILY (10MI NS IVPUSH OVER 2 MINUTES)
     Route: 042
     Dates: start: 20130503, end: 20130509
  2. CUBICIN [Suspect]
     Indication: OFF LABEL USE
     Dosage: 570 MG, DAILY (10MI NS IVPUSH OVER 2 MINUTES)
     Route: 042
     Dates: start: 20130503, end: 20130509
  3. AMIODARONE [Concomitant]
     Indication: PRODUCT USED FOR UNKNOWN INDICATION
     Dosage: 200 MG, BID
     Route: 048
     Dates: start: 20130503
  4. ATORVASTATIN CALCIUM [Concomitant]
     Indication: PRODUCT USED FOR UNKNOWN INDICATION
     Dosage: 20 MG, QD (AT BEDTIME)
     Route: 048
     Dates: start: 20130503, end: 20130520
  5. CYCLOBENZAPRINE HYDROCHLORIDE [Concomitant]
     Indication: PRODUCT USED FOR UNKNOWN INDICATION
     Dosage: 5 MG, BID
     Route: 048
     Dates: start: 20130503, end: 20130520
  6. PRADAXA [Concomitant]
     Indication: PRODUCT USED FOR UNKNOWN INDICATION
     Dosage: 75 MG, BID
     Route: 048
     Dates: start: 20130503, end: 20130522
  7. DOCUSATE SODIUM [Concomitant]
     Indication: PRODUCT USED FOR UNKNOWN INDICATION
     Dosage: 250 MG, HS
     Route: 048
     Dates: start: 20130503
  8. DOXYCYCLINE [Concomitant]
     Indication: PRODUCT USED FOR UNKNOWN INDICATION
     Dosage: 100 MG, BID
     Route: 048
     Dates: start: 20130503, end: 20130615
  9. FERROUS SULPHATE                   /00023503/ [Concomitant]
     Indication: PRODUCT USED FOR UNKNOWN INDICATION
     Dosage: 325 MG, Q8H
     Route: 048
     Dates: start: 20130503, end: 20130520
  10. FERROUS SULPHATE                   /00023503/ [Concomitant]
     Dosage: 325 MG, BID
     Route: 048
     Dates: start: 20130521
  11. LASIX                              /00032601/ [Concomitant]
     Indication: PRODUCT USED FOR UNKNOWN INDICATION
     Dosage: 80 MG, QD
     Route: 048
     Dates: start: 20130503, end: 20130520
  12. METOPROLOL                         /00376902/ [Concomitant]
     Indication: PRODUCT USED FOR UNKNOWN INDICATION
     Dosage: 25 MG, BID
     Route: 048
     Dates: start: 20130503
  13. POTASSIUM CHLORIDE [Concomitant]
     Indication: PRODUCT USED FOR UNKNOWN INDICATION
     Dosage: 20 MEQ, QD
     Route: 048
     Dates: start: 20130503, end: 20130520
  14. JANUVIA [Concomitant]
     Indication: PRODUCT USED FOR UNKNOWN INDICATION
     Dosage: 25 MG, QD (EVERY MORNING)
     Route: 048
     Dates: start: 20130503, end: 20130520
  15. DIPHENHYDRAMINE [Concomitant]
     Indication: ANAPHYLACTIC REACTION
     Dosage: 50 MG/ML, 1 ML, ONE TIME DOSE PRN
     Route: 030
     Dates: start: 20130503, end: 20130517
  16. NORMAL SALINE [Concomitant]
     Indication: PRODUCT USED FOR UNKNOWN INDICATION
     Dosage: 10 ML PRE BLOOD DRAWN
     Route: 042
     Dates: start: 20130503, end: 20130517
  17. NORMAL SALINE [Concomitant]
     Dosage: 20 ML POST BLOOD DRAWN
     Route: 042
     Dates: start: 20130503, end: 20130517
  18. EPINEPHRINE [Concomitant]
     Indication: ANAPHYLACTIC REACTION
     Dosage: 0.5 MG, ONE TIME DOSE PRN
     Route: 030
     Dates: start: 20130503, end: 20130517
  19. TYLENOL                            /00020001/ [Concomitant]
     Indication: PAIN
     Dosage: 1-2 TABLETS EVERY 4-6 HOURS
     Route: 048
     Dates: start: 20130509
  20. SULFAMETHOXAZOLE [Concomitant]
     Indication: PRODUCT USED FOR UNKNOWN INDICATION
     Dosage: 800-160 MG, BID
     Route: 048
     Dates: start: 20130513, end: 20130523
  21. ASPIRIN [Concomitant]
     Indication: PRODUCT USED FOR UNKNOWN INDICATION
     Dosage: 81 MG, BID
     Route: 048
     Dates: start: 20130522

REACTIONS (3)
  - Blood creatine phosphokinase increased [Recovered/Resolved]
  - Dehydration [Recovered/Resolved]
  - Pain [Recovered/Resolved]
